FAERS Safety Report 14624798 (Version 2)
Quarter: 2019Q2

REPORT INFORMATION
  Report Type: Spontaneous
  Country: US (occurrence: US)
  Receive Date: 20180312
  Receipt Date: 20190403
  Transmission Date: 20190711
  Serious: No
  Sender: FDA-Public Use
  Company Number: US-PFIZER INC-2018098665

PATIENT
  Age: 66 Year
  Sex: Female
  Weight: 74 kg

DRUGS (1)
  1. LYRICA [Suspect]
     Active Substance: PREGABALIN
     Indication: FIBROMYALGIA
     Dosage: 150 MG, 2X/DAY

REACTIONS (2)
  - Circumstance or information capable of leading to medication error [Unknown]
  - Feeling abnormal [Unknown]
